FAERS Safety Report 7063871-9 (Version None)
Quarter: 2010Q4

REPORT INFORMATION
  Report Type: 
  Country: None (occurrence: None)
  Receive Date: 20101026
  Receipt Date: 20101019
  Transmission Date: 20110411
  Serious: Yes (Other)
  Sender: FDA-Public Use
  Company Number: BR-US-EMD SERONO, INC.-7023558

PATIENT
  Sex: Male

DRUGS (5)
  1. REBIF [Suspect]
     Indication: RELAPSING-REMITTING MULTIPLE SCLEROSIS
     Route: 058
     Dates: start: 20041220
  2. MANTIDAN [Concomitant]
  3. LEXAPRO [Concomitant]
  4. CITALOPRAM HYDROBROMIDE [Concomitant]
  5. OMEPRAZOLE [Concomitant]

REACTIONS (3)
  - DEAFNESS [None]
  - EAR INFECTION [None]
  - PHARYNGITIS [None]
